FAERS Safety Report 4364836-8 (Version None)
Quarter: 2004Q2

REPORT INFORMATION
  Report Type: 
  Country: None (occurrence: None)
  Receive Date: 20040526
  Receipt Date: 20040316
  Transmission Date: 20050107
  Serious: No
  Sender: FDA-Public Use
  Company Number: US-GLAXOSMITHKLINE-A0503798A

PATIENT
  Age: 42 Year
  Sex: Female

DRUGS (8)
  1. LOTRONEX [Suspect]
     Indication: IRRITABLE BOWEL SYNDROME
     Dosage: 1MG TWICE PER DAY
     Route: 048
     Dates: start: 20000817
  2. PRILOSEC [Concomitant]
  3. CELEBREX [Concomitant]
  4. SKELAXIN [Concomitant]
  5. PREMARIN [Concomitant]
  6. REGLAN [Concomitant]
  7. DARVOCET [Concomitant]
  8. ULTRAM [Concomitant]

REACTIONS (1)
  - CONSTIPATION [None]
